FAERS Safety Report 25239724 (Version 1)
Quarter: 2025Q2

REPORT INFORMATION
  Report Type: Spontaneous
  Country: FR (occurrence: FR)
  Receive Date: 20250425
  Receipt Date: 20250425
  Transmission Date: 20250716
  Serious: Yes (Hospitalization)
  Sender: MYLAN
  Company Number: None

PATIENT
  Age: 72 Year
  Sex: Female
  Weight: 50 kg

DRUGS (16)
  1. POSACONAZOLE [Suspect]
     Active Substance: POSACONAZOLE
     Indication: Prophylaxis
     Dosage: 300 MILLIGRAM, QD
     Dates: start: 20241223
  2. POSACONAZOLE [Suspect]
     Active Substance: POSACONAZOLE
     Dosage: 300 MILLIGRAM, QD
     Route: 048
     Dates: start: 20241223
  3. POSACONAZOLE [Suspect]
     Active Substance: POSACONAZOLE
     Dosage: 300 MILLIGRAM, QD
     Route: 048
     Dates: start: 20241223
  4. POSACONAZOLE [Suspect]
     Active Substance: POSACONAZOLE
     Dosage: 300 MILLIGRAM, QD
     Dates: start: 20241223
  5. AZACITIDINE [Suspect]
     Active Substance: AZACITIDINE
     Indication: Acute myeloid leukaemia
     Dates: start: 20241127, end: 20241205
  6. AZACITIDINE [Suspect]
     Active Substance: AZACITIDINE
     Route: 058
     Dates: start: 20241127, end: 20241205
  7. AZACITIDINE [Suspect]
     Active Substance: AZACITIDINE
     Route: 058
     Dates: start: 20241127, end: 20241205
  8. AZACITIDINE [Suspect]
     Active Substance: AZACITIDINE
     Dates: start: 20241127, end: 20241205
  9. HYDREA [Suspect]
     Active Substance: HYDROXYUREA
     Indication: Acute myeloid leukaemia
     Dosage: 2 GRAM, QD
     Dates: start: 20241114, end: 20241122
  10. HYDREA [Suspect]
     Active Substance: HYDROXYUREA
     Dosage: 2 GRAM, QD
     Route: 048
     Dates: start: 20241114, end: 20241122
  11. HYDREA [Suspect]
     Active Substance: HYDROXYUREA
     Dosage: 2 GRAM, QD
     Route: 048
     Dates: start: 20241114, end: 20241122
  12. HYDREA [Suspect]
     Active Substance: HYDROXYUREA
     Dosage: 2 GRAM, QD
     Dates: start: 20241114, end: 20241122
  13. VENETOCLAX [Suspect]
     Active Substance: VENETOCLAX
     Indication: Acute myeloid leukaemia
     Dosage: 200 MILLIGRAM, QD
     Dates: start: 20241122, end: 20241219
  14. VENETOCLAX [Suspect]
     Active Substance: VENETOCLAX
     Dosage: 200 MILLIGRAM, QD
     Route: 048
     Dates: start: 20241122, end: 20241219
  15. VENETOCLAX [Suspect]
     Active Substance: VENETOCLAX
     Dosage: 200 MILLIGRAM, QD
     Route: 048
     Dates: start: 20241122, end: 20241219
  16. VENETOCLAX [Suspect]
     Active Substance: VENETOCLAX
     Dosage: 200 MILLIGRAM, QD
     Dates: start: 20241122, end: 20241219

REACTIONS (1)
  - Bone marrow failure [Not Recovered/Not Resolved]

NARRATIVE: CASE EVENT DATE: 20241216
